FAERS Safety Report 26055039 (Version 1)
Quarter: 2025Q4

REPORT INFORMATION
  Report Type: Spontaneous
  Country: GT (occurrence: GT)
  Receive Date: 20251117
  Receipt Date: 20251117
  Transmission Date: 20260117
  Serious: Yes (Death, Life-Threatening, Disabling, Other)
  Sender: BRISTOL-MYERS SQUIBB COMPANY
  Company Number: GT-BRISTOL-MYERS SQUIBB COMPANY-2025-155346

PATIENT
  Sex: Female

DRUGS (2)
  1. OPDIVO [Suspect]
     Active Substance: NIVOLUMAB
     Indication: Renal cancer
     Route: 042
  2. YERVOY [Suspect]
     Active Substance: IPILIMUMAB
     Indication: Renal cancer
     Dosage: 50MG/10ML, 50 MG X 1 INY X 1 FCO
     Route: 042

REACTIONS (3)
  - Gait inability [Unknown]
  - Pneumonia [Fatal]
  - Pain [Unknown]

NARRATIVE: CASE EVENT DATE: 20250101
